FAERS Safety Report 15326774 (Version 5)
Quarter: 2019Q2

REPORT INFORMATION
  Report Type: Spontaneous
  Country: PL (occurrence: PL)
  Receive Date: 20180828
  Receipt Date: 20190528
  Transmission Date: 20190711
  Serious: Yes (Hospitalization, Other)
  Sender: FDA-Public Use
  Company Number: PL-MYLANLABS-2018M1063374

PATIENT
  Age: 70 Year
  Sex: Male

DRUGS (32)
  1. METOPROLOL. [Interacting]
     Active Substance: METOPROLOL
     Dosage: 1 X 25 MG, DOSE REDUCED
  2. METOPROLOL. [Concomitant]
     Active Substance: METOPROLOL
     Dosage: 100 MILLIGRAM, QD
  3. DULOXETINE. [Interacting]
     Active Substance: DULOXETINE
     Indication: DEPRESSION
  4. CIPROFLOXACIN CLARIS [Suspect]
     Active Substance: CIPROFLOXACIN LACTATE
     Indication: PRODUCT USED FOR UNKNOWN INDICATION
     Dosage: 2 DOSAGE FORM, QD
     Route: 065
  5. TAMSULOSIN [Concomitant]
     Active Substance: TAMSULOSIN
     Indication: PRODUCT USED FOR UNKNOWN INDICATION
     Dosage: 0.4 MILLIGRAM, QD
  6. DABIGATRAN [Concomitant]
     Active Substance: DABIGATRAN
     Indication: PRODUCT USED FOR UNKNOWN INDICATION
     Dosage: 300 MILLIGRAM, QD
  7. DULOXETINE. [Interacting]
     Active Substance: DULOXETINE
     Indication: DEPRESSIVE SYMPTOM
     Dosage: 60 MILLIGRAM, QD, TAKEN IN THE MORNING
     Route: 065
  8. QUETIAPINE. [Interacting]
     Active Substance: QUETIAPINE
     Indication: DEPRESSION
  9. CIPROFLOXACIN CLARIS [Suspect]
     Active Substance: CIPROFLOXACIN LACTATE
     Dosage: 1 DOSAGE FORM, QD
     Route: 065
  10. METOPROLOL. [Concomitant]
     Active Substance: METOPROLOL
     Dosage: 1000 MILLIGRAM(X2)
  11. DIGOXIN. [Concomitant]
     Active Substance: DIGOXIN
     Indication: PRODUCT USED FOR UNKNOWN INDICATION
     Dosage: 0.1 MILLIGRAM, QD
  12. DABIGATRAN [Concomitant]
     Active Substance: DABIGATRAN
     Dosage: 150 MILLIGRAM, BID
  13. CIPROFLOXACIN. [Suspect]
     Active Substance: CIPROFLOXACIN
     Indication: PROSTATITIS
     Dosage: 1000 MILLIGRAM, QD
     Route: 048
  14. CIPROFLOXACIN. [Interacting]
     Active Substance: CIPROFLOXACIN
     Dosage: 500 MILLIGRAM, QD
     Route: 065
  15. QUETIAPINE. [Interacting]
     Active Substance: QUETIAPINE
     Indication: INITIAL INSOMNIA
     Dosage: 1 X 50 MG, TAKEN AT BED TIME
     Route: 048
  16. THIOCTIC ACID [Concomitant]
     Active Substance: THIOCTIC ACID
     Indication: PRODUCT USED FOR UNKNOWN INDICATION
     Dosage: 600 MILLIGRAM, QD
  17. QUETIAPINE. [Concomitant]
     Active Substance: QUETIAPINE
     Indication: SLEEP DISORDER
  18. METOPROLOL. [Concomitant]
     Active Substance: METOPROLOL
     Indication: PRODUCT USED FOR UNKNOWN INDICATION
     Dosage: 50 MG, UNK (2X50 MG)
  19. ALPHA LIPOIC ACID [Concomitant]
     Active Substance: .ALPHA.-LIPOIC ACID
     Indication: PRODUCT USED FOR UNKNOWN INDICATION
     Dosage: 600 MILLIGRAM, QD
  20. DULOXETINE. [Interacting]
     Active Substance: DULOXETINE
     Indication: ADJUVANT THERAPY
  21. QUETIAPINE. [Concomitant]
     Active Substance: QUETIAPINE
     Indication: DEPRESSIVE SYMPTOM
     Dosage: 50 MILLIGRAM, QD(BED TIME)
     Route: 065
  22. QUETIAPINE. [Concomitant]
     Active Substance: QUETIAPINE
     Indication: INSOMNIA
  23. CIPROFLOXACIN. [Interacting]
     Active Substance: CIPROFLOXACIN
     Dosage: 500 MILLIGRAM, QD
     Route: 048
  24. CIPROFLOXACIN. [Interacting]
     Active Substance: CIPROFLOXACIN
     Dosage: 500 MILLIGRAM, BID
     Route: 048
  25. METOPROLOL. [Interacting]
     Active Substance: METOPROLOL
     Indication: PRODUCT USED FOR UNKNOWN INDICATION
     Dosage: 1 X 25 MG, DOSE REDUCED
  26. QUETIAPINE. [Concomitant]
     Active Substance: QUETIAPINE
     Indication: DEPRESSION
  27. DULOXETINE. [Interacting]
     Active Substance: DULOXETINE
     Indication: DIABETIC NEUROPATHY
     Dosage: 90 MILLIGRAM, QD, DOSE INCREASED
     Route: 065
  28. METOPROLOL. [Concomitant]
     Active Substance: METOPROLOL
     Dosage: 25 MILLIGRAM, QD
  29. TAMSULOSIN [Concomitant]
     Active Substance: TAMSULOSIN
     Dosage: 0.1 MILLIGRAM(X1)
  30. METFORMIN [Concomitant]
     Active Substance: METFORMIN HYDROCHLORIDE
     Indication: PRODUCT USED FOR UNKNOWN INDICATION
     Dosage: 20000 MILLIGRAM, QD
  31. METFORMIN [Concomitant]
     Active Substance: METFORMIN HYDROCHLORIDE
     Dosage: 1000 MILLIGRAM, BID
  32. DABIGATRAN [Concomitant]
     Active Substance: DABIGATRAN
     Dosage: UNK

REACTIONS (22)
  - Prostatitis [Recovered/Resolved]
  - Tremor [Recovered/Resolved]
  - Depressed mood [Recovered/Resolved]
  - Nausea [Recovered/Resolved]
  - Yawning [Recovered/Resolved]
  - Drug interaction [Recovered/Resolved]
  - Affective disorder [Recovered/Resolved]
  - Intentional product misuse [Unknown]
  - Overdose [Unknown]
  - Diplopia [Recovered/Resolved]
  - Off label use [Unknown]
  - Drug abuse [Unknown]
  - Anhedonia [Recovered/Resolved]
  - Urinary retention [Recovered/Resolved]
  - Anxiety [Recovered/Resolved]
  - Headache [Recovered/Resolved]
  - Initial insomnia [Recovered/Resolved]
  - Pain [Recovered/Resolved]
  - Bradycardia [Recovered/Resolved]
  - Dizziness [Recovered/Resolved]
  - Syncope [Recovered/Resolved]
  - Toxicity to various agents [Recovered/Resolved]
